FAERS Safety Report 9402823 (Version 1)
Quarter: 2013Q3

REPORT INFORMATION
  Report Type: Spontaneous
  Country: US (occurrence: US)
  Receive Date: 20130716
  Receipt Date: 20130716
  Transmission Date: 20140515
  Serious: Yes (Other)
  Sender: FDA-Public Use
  Company Number: PHHY2013US073572

PATIENT
  Age: 2 Year
  Sex: Male

DRUGS (1)
  1. DIGOXIN [Suspect]
     Dosage: UNK UKN, UNK

REACTIONS (13)
  - Atrioventricular block first degree [Unknown]
  - Toxicity to various agents [Unknown]
  - Arrhythmia [Unknown]
  - Supraventricular extrasystoles [Unknown]
  - Electrocardiogram ST segment depression [Unknown]
  - Electrocardiogram T wave amplitude decreased [Unknown]
  - Heart rate decreased [Unknown]
  - Blood pressure decreased [Unknown]
  - Peripheral coldness [Unknown]
  - Pallor [Unknown]
  - Vomiting [Unknown]
  - Somnolence [Unknown]
  - Accidental exposure to product by child [Unknown]
